FAERS Safety Report 19773240 (Version 1)
Quarter: 2021Q3

REPORT INFORMATION
  Report Type: Spontaneous
  Country: RU (occurrence: RU)
  Receive Date: 20210901
  Receipt Date: 20210901
  Transmission Date: 20211014
  Serious: Yes (Other)
  Sender: FDA-Public Use
  Company Number: RU-FRESENIUS KABI-FK202109305

PATIENT
  Age: 74 Year
  Sex: Male

DRUGS (12)
  1. CAPECITABINE. [Concomitant]
     Active Substance: CAPECITABINE
     Indication: METASTASES TO LIVER
     Dosage: UNDERWENT 4 COURSE OF THE XELOX REGIMEN
     Route: 065
     Dates: start: 20200317, end: 20200602
  2. FOLINIC ACID [Concomitant]
     Active Substance: LEUCOVORIN
     Dosage: BY JUN/2021, UNDERWENT 10 CYCLES OF DRUG CHEMOTHERAPY ACCORDING TO THE FOLFIRI+RAMUCIRUMAB REGIMEN
     Route: 065
  3. FLUOROURACIL. [Concomitant]
     Active Substance: FLUOROURACIL
     Dosage: BY JUN/2021, UNDERWENT 10 CYCLES OF DRUG CHEMOTHERAPY ACCORDING TO THE FOLFIRI+RAMUCIRUMAB REGIMEN
     Route: 065
  4. FLUOROURACIL. [Concomitant]
     Active Substance: FLUOROURACIL
     Dosage: 2400 MG/M2 IV 48 H,2ND LINE OF DRUG THERAPY WAS RECOMMENDED ACCORDING TO THE FOLFIRI SCHEME
     Route: 065
  5. RAMUCIRUMAB [Concomitant]
     Active Substance: RAMUCIRUMAB
     Indication: METASTASES TO LIVER
     Dosage: 8 MG/KG ON DAYS 1 AND 15 EVERY 28 DAYS
     Route: 065
  6. FOLINIC ACID [Concomitant]
     Active Substance: LEUCOVORIN
     Indication: METASTASES TO LIVER
     Dosage: 2ND LINE OF DRUG THERAPY WAS RECOMMENDED ACCORDING TO THE FOLFIRI SCHEME
     Route: 065
  7. IRINOTECAN (MANUFACTURER UNKNOWN) [Suspect]
     Active Substance: IRINOTECAN
     Indication: METASTASES TO LIVER
     Dosage: 2ND LINE OF DRUG THERAPY WAS RECOMMENDED ACCORDING TO THE FOLFIRI SCHEME
     Route: 065
  8. OXALIPLATIN (MANUFACTURER UNKNOWN) [Suspect]
     Active Substance: OXALIPLATIN
     Indication: METASTASES TO LIVER
     Dosage: UNDERWENT 4 COURSE OF THE XELOX REGIMEN
     Route: 065
     Dates: start: 20200317, end: 20200602
  9. IRINOTECAN (MANUFACTURER UNKNOWN) [Suspect]
     Active Substance: IRINOTECAN
     Dosage: BY JUN/2021, UNDERWENT 10 CYCLES OF DRUG CHEMOTHERAPY ACCORDING TO THE FOLFIRI+RAMUCIRUMAB REGIMEN
     Route: 065
  10. FLUOROURACIL. [Concomitant]
     Active Substance: FLUOROURACIL
     Indication: METASTASES TO LIVER
     Dosage: 2ND LINE OF DRUG THERAPY WAS RECOMMENDED ACCORDING TO THE FOLFIRI SCHEME
     Route: 065
  11. IRINOTECAN (MANUFACTURER UNKNOWN) [Suspect]
     Active Substance: IRINOTECAN
     Route: 065
  12. RAMUCIRUMAB [Concomitant]
     Active Substance: RAMUCIRUMAB
     Dosage: BY JUN/2021, UNDERWENT 10 CYCLES OF DRUG CHEMOTHERAPY ACCORDING TO THE FOLFIRI+RAMUCIRUMAB REGIMEN
     Route: 065

REACTIONS (8)
  - Disease progression [Unknown]
  - Polyneuropathy [Unknown]
  - Asthenia [Unknown]
  - Thrombocytopenia [Unknown]
  - Diarrhoea [Unknown]
  - Metastases to liver [Unknown]
  - Neutropenia [Unknown]
  - Stomatitis [Unknown]
